FAERS Safety Report 10416640 (Version 5)
Quarter: 2015Q1

REPORT INFORMATION
  Report Type: Report from Study
  Country: US (occurrence: US)
  Receive Date: 20140828
  Receipt Date: 20150102
  Transmission Date: 20150720
  Serious: Yes (Hospitalization)
  Sender: FDA-Public Use
  Company Number: US-MERCK-1407USA011137

PATIENT
  Age: 42 Year
  Sex: Male

DRUGS (6)
  1. LEVAQUIN [Concomitant]
     Active Substance: LEVOFLOXACIN
     Indication: PNEUMONIA
  2. ACETAMINOPHEN (+) HYDROCODONE BITARTRATE [Concomitant]
     Active Substance: ACETAMINOPHEN\HYDROCODONE
     Indication: PAIN
     Dosage: TOTAL DAILY DOSE 15 MILILITER, FREQUENCY: OTHER
     Route: 048
     Dates: start: 20140625
  3. DAPTOMYCIN. [Concomitant]
     Active Substance: DAPTOMYCIN
     Indication: WOUND INFECTION
     Dosage: 525 MG, QD
     Route: 042
     Dates: start: 20140626
  4. PRE TRIAL THERAPY [Suspect]
     Active Substance: UNSPECIFIED INGREDIENT
     Indication: NON-SMALL CELL LUNG CANCER
  5. HEXADROL [Suspect]
     Active Substance: DEXAMETHASONE
     Indication: OEDEMA
     Dosage: 2 MG, QD
     Route: 048
     Dates: start: 20140627, end: 20140715
  6. LEVAQUIN [Concomitant]
     Active Substance: LEVOFLOXACIN
     Indication: WOUND INFECTION
     Dosage: 750 MG, QD
     Route: 048
     Dates: start: 20140627

REACTIONS (2)
  - Anaemia [Recovered/Resolved]
  - Brain oedema [Recovered/Resolved]

NARRATIVE: CASE EVENT DATE: 20140716
